FAERS Safety Report 17015920 (Version 1)
Quarter: 2019Q4

REPORT INFORMATION
  Report Type: Spontaneous
  Country: US (occurrence: US)
  Receive Date: 20191108
  Receipt Date: 20191108
  Transmission Date: 20200122
  Serious: Yes (Hospitalization, Other)
  Sender: FDA-Public Use
  Company Number: None

PATIENT
  Age: 47 Year
  Sex: Female
  Weight: 77.85 kg

DRUGS (2)
  1. ALPRAZOLAM TABLETS, USP C IV .05 MG [Suspect]
     Active Substance: ALPRAZOLAM
     Indication: ANXIETY
     Dosage: ?          QUANTITY:10 TABLET(S);?
     Route: 048
     Dates: start: 20190903, end: 20191022
  2. ALPRAZOLAM TABLETS, USP C IV .05 MG [Suspect]
     Active Substance: ALPRAZOLAM
     Indication: AEROPHOBIA
     Dosage: ?          QUANTITY:10 TABLET(S);?
     Route: 048
     Dates: start: 20190903, end: 20191022

REACTIONS (7)
  - Chills [None]
  - Abdominal pain upper [None]
  - Hepatic enzyme increased [None]
  - Diarrhoea [None]
  - Ill-defined disorder [None]
  - Vomiting [None]
  - Gallbladder operation [None]

NARRATIVE: CASE EVENT DATE: 20191104
